FAERS Safety Report 12912779 (Version 4)
Quarter: 2017Q2

REPORT INFORMATION
  Report Type: Spontaneous
  Country: JP (occurrence: JP)
  Receive Date: 20161104
  Receipt Date: 20170505
  Transmission Date: 20170830
  Serious: Yes (Hospitalization, Other)
  Sender: FDA-Public Use
  Company Number: JP-BRISTOL-MYERS SQUIBB COMPANY-BMS-2016-092564

PATIENT
  Age: 63 Year
  Sex: Female

DRUGS (2)
  1. YERVOY [Suspect]
     Active Substance: IPILIMUMAB
     Indication: OVARIAN CANCER
     Dosage: 10 MG, UNK
     Route: 041
     Dates: start: 2016
  2. OPDIVO [Suspect]
     Active Substance: NIVOLUMAB
     Indication: OVARIAN CANCER
     Dosage: UNK
     Route: 041
     Dates: start: 201604, end: 201604

REACTIONS (7)
  - Tumour pseudoprogression [Unknown]
  - Eosinophil count increased [Unknown]
  - Product use in unapproved indication [Unknown]
  - Hypophysitis [Recovered/Resolved]
  - Pneumonia [Recovered/Resolved]
  - Adrenal insufficiency [Unknown]
  - Off label use [Unknown]

NARRATIVE: CASE EVENT DATE: 201607
